FAERS Safety Report 9601239 (Version 3)
Quarter: 2013Q4

REPORT INFORMATION
  Report Type: Report from Study
  Country: US (occurrence: US)
  Receive Date: 20131005
  Receipt Date: 20131030
  Transmission Date: 20140711
  Serious: Yes (Hospitalization)
  Sender: FDA-Public Use
  Company Number: US-BRISTOL-MYERS SQUIBB COMPANY-19362086

PATIENT
  Age: 10 Year
  Sex: Male

DRUGS (17)
  1. DASATINIB [Suspect]
     Indication: ACUTE LYMPHOCYTIC LEUKAEMIA
     Route: 048
     Dates: start: 20121112
  2. CYCLOPHOSPHAMIDE [Suspect]
     Indication: ACUTE LYMPHOCYTIC LEUKAEMIA
     Route: 042
     Dates: start: 20130828
  3. CYTARABINE [Suspect]
     Indication: ACUTE LYMPHOCYTIC LEUKAEMIA
     Dosage: 75MG FROM 18-SEP-2013 TO 21-SEP-2013
     Route: 042
     Dates: start: 20130830, end: 20130901
  4. METHOTREXATE [Suspect]
     Indication: ACUTE LYMPHOCYTIC LEUKAEMIA
     Dosage: 18-SEP-2013
     Route: 037
     Dates: start: 20130830
  5. THIOGUANINE [Suspect]
     Indication: ACUTE LYMPHOCYTIC LEUKAEMIA
     Dosage: 1-SEP-2013 TO 18-SEP-2013
     Route: 048
     Dates: start: 20130828, end: 20130922
  6. BACTRIM DS [Concomitant]
     Dosage: TABS, 140MG
     Route: 048
  7. EMLA [Concomitant]
     Dosage: 1DF=1 APPL
     Route: 061
  8. DRONABINOL [Concomitant]
     Indication: VOMITING
     Dosage: CAPS
     Route: 048
  9. DRONABINOL [Concomitant]
     Indication: NAUSEA
     Dosage: CAPS
     Route: 048
  10. LORAZEPAM [Concomitant]
     Indication: NAUSEA
     Dosage: 2MG/ML ORAL CONCENTRATE
     Route: 048
  11. LORAZEPAM [Concomitant]
     Indication: VOMITING
     Dosage: 2MG/ML ORAL CONCENTRATE
     Route: 048
  12. ONDANSETRON [Concomitant]
     Indication: VOMITING
     Dosage: TABS
     Route: 048
  13. ONDANSETRON [Concomitant]
     Indication: NAUSEA
     Dosage: TABS
     Route: 048
  14. OXYCODONE [Concomitant]
     Indication: PAIN
     Dosage: 5MG/ML ORAL SOLUTION
     Route: 048
  15. POLYETHYLENE GLYCOL 3350 [Concomitant]
     Indication: CONSTIPATION
     Dosage: 1DF=1 CAPS
     Route: 048
  16. ACETAMINOPHEN [Concomitant]
     Indication: PYREXIA
  17. DIPHENHYDRAMINE [Concomitant]
     Route: 048

REACTIONS (9)
  - Dehydration [Recovered/Resolved]
  - Hyponatraemia [Recovered/Resolved]
  - Anaemia [Recovered/Resolved]
  - Diarrhoea [Recovered/Resolved]
  - Pyrexia [Recovered/Resolved]
  - Nausea [Recovered/Resolved]
  - Hypotension [Recovered/Resolved]
  - Tachycardia [Recovered/Resolved]
  - Hypokalaemia [Recovered/Resolved]
